FAERS Safety Report 9468083 (Version 1)
Quarter: 2013Q3

REPORT INFORMATION
  Report Type: Spontaneous
  Country: NZ (occurrence: NZ)
  Receive Date: 20130821
  Receipt Date: 20130821
  Transmission Date: 20140515
  Serious: Yes (Other)
  Sender: FDA-Public Use
  Company Number: NZ-ELI_LILLY_AND_COMPANY-NZ201308002678

PATIENT
  Age: 21 Year
  Sex: Female

DRUGS (4)
  1. ZYPREXA RELPREVV [Suspect]
     Indication: BIPOLAR DISORDER
     Dosage: 300 MG, MONTHLY (1/M)
     Route: 030
     Dates: start: 20120328
  2. PROCYCLIDINE [Concomitant]
     Indication: AKATHISIA
     Dosage: 5 MG, BID
     Route: 048
     Dates: start: 20130503
  3. PROCHLORPERAZINE MALEATE [Concomitant]
     Indication: NAUSEA
     Dosage: 5 MG, TID
     Route: 048
     Dates: start: 20130726, end: 20130731
  4. PARACETAMOL [Concomitant]
     Dosage: UNK, UNKNOWN
     Route: 065

REACTIONS (6)
  - Hypoaesthesia [Recovered/Resolved]
  - Sedation [Recovered/Resolved]
  - Dizziness [Recovered/Resolved]
  - Nausea [Recovered/Resolved]
  - Dysarthria [Recovered/Resolved]
  - Vomiting [Recovered/Resolved]
